FAERS Safety Report 4345835-9 (Version None)
Quarter: 2004Q2

REPORT INFORMATION
  Report Type: 
  Country: None (occurrence: None)
  Receive Date: 20040423
  Receipt Date: 20040423
  Transmission Date: 20050107
  Serious: No
  Sender: FDA-Public Use
  Company Number: None

PATIENT
  Age: 67 Year
  Sex: Male
  Weight: 121 kg

DRUGS (10)
  1. XIGRIS [Suspect]
     Indication: SEPSIS
  2. DOBUTAMINE [Concomitant]
  3. LEVOPHED [Concomitant]
  4. VERSED [Concomitant]
  5. VASOPRESSOR [Concomitant]
  6. HEPARIN [Concomitant]
  7. ZOSYN [Concomitant]
  8. HYDROCORTISONE [Concomitant]
  9. PROTOMIX [Concomitant]
  10. AZITHROMYCIN [Concomitant]

REACTIONS (1)
  - CATHETER SITE HAEMORRHAGE [None]
